FAERS Safety Report 5373768-8 (Version None)
Quarter: 2007Q2

REPORT INFORMATION
  Report Type: 
  Country: None (occurrence: None)
  Receive Date: 20070615
  Receipt Date: 20060713
  Transmission Date: 20071010
  Serious: Yes (Other)
  Sender: FDA-Public Use
  Company Number: 200520368US

PATIENT
  Age: 66 Year
  Sex: Female
  Weight: 63 kg

DRUGS (11)
  1. LANTUS [Suspect]
     Indication: DIABETES MELLITUS NON-INSULIN-DEPENDENT
     Dosage: QD SC
     Route: 058
     Dates: start: 20050401
  2. OPTICLIK [Suspect]
     Indication: DIABETES MELLITUS NON-INSULIN-DEPENDENT
     Dates: start: 20050401
  3. LYRICA [Suspect]
     Indication: RHEUMATOID ARTHRITIS
  4. GUAIFENESIN [Suspect]
     Indication: NASOPHARYNGITIS
  5. TRAMADOL HCL [Suspect]
     Indication: RHEUMATOID ARTHRITIS
  6. SALBUTAMOL [Suspect]
     Indication: NASOPHARYNGITIS
  7. GLIPIZIDE [Concomitant]
  8. CLOPIDOGREL (PLAVIX /01220701/) [Concomitant]
  9. AVANDIA [Concomitant]
  10. AMLODIPINE [Concomitant]
  11. BENAZEPRIL HYDROCHLORIDE (LOTREL /01289101/) [Concomitant]

REACTIONS (6)
  - ASTHENIA [None]
  - BLOOD GLUCOSE DECREASED [None]
  - BLOOD GLUCOSE FLUCTUATION [None]
  - BLOOD GLUCOSE INCREASED [None]
  - HYPOGLYCAEMIA [None]
  - NERVOUSNESS [None]
